FAERS Safety Report 5822195-5 (Version None)
Quarter: 2008Q3

REPORT INFORMATION
  Report Type: 
  Country: None (occurrence: None)
  Receive Date: 20080714
  Receipt Date: 20080322
  Transmission Date: 20090109
  Serious: No
  Sender: FDA-Public Use
  Company Number: 554761

PATIENT
  Age: 83 Year
  Sex: Female

DRUGS (4)
  1. BONIVA [Suspect]
     Indication: OSTEOPOROSIS
     Dosage: 1 PER MONTH
     Dates: start: 20050101
  2. CALCIUM (CALCIUM) [Concomitant]
  3. FISH OIL (FATTY ACIDS NOS) [Concomitant]
  4. VITAMIN E (ALPHA-TOCOPHEROL) [Concomitant]

REACTIONS (1)
  - OSTEOARTHRITIS [None]
